FAERS Safety Report 7465237-6 (Version None)
Quarter: 2011Q2

REPORT INFORMATION
  Report Type: 
  Country: None (occurrence: None)
  Receive Date: 20110505
  Receipt Date: 20110505
  Transmission Date: 20111010
  Serious: Yes (Life-Threatening, Other)
  Sender: FDA-Public Use
  Company Number: None

PATIENT
  Sex: Male
  Weight: 87.5442 kg

DRUGS (1)
  1. TRAMADOL HYDROHLORIDE [Suspect]
     Indication: HAND FRACTURE
     Dosage: ONE 4X PER DAY ORAL
     Route: 048
     Dates: start: 20110423

REACTIONS (3)
  - PAIN [None]
  - SWELLING [None]
  - DRUG INEFFECTIVE [None]
